FAERS Safety Report 16728664 (Version 1)
Quarter: 2019Q3

REPORT INFORMATION
  Report Type: Spontaneous
  Country: CN (occurrence: CN)
  Receive Date: 20190822
  Receipt Date: 20190822
  Transmission Date: 20191005
  Serious: Yes (Other)
  Sender: FDA-Public Use
  Company Number: CN-ROCHE-2375283

PATIENT
  Age: 32 Year
  Sex: Female
  Weight: 65 kg

DRUGS (4)
  1. PERJETA [Suspect]
     Active Substance: PERTUZUMAB
     Indication: TARGETED CANCER THERAPY
     Dosage: INJECTION
     Route: 041
  2. HERCEPTIN [Suspect]
     Active Substance: TRASTUZUMAB
     Indication: TARGETED CANCER THERAPY
     Dosage: INJECTION
     Route: 041
  3. PERJETA [Suspect]
     Active Substance: PERTUZUMAB
     Dosage: INJECTION.
     Route: 041
     Dates: start: 20190806, end: 20190806
  4. HERCEPTIN [Suspect]
     Active Substance: TRASTUZUMAB
     Dosage: INJECTION.
     Route: 041
     Dates: start: 20190806, end: 20190806

REACTIONS (3)
  - Red blood cell count decreased [Unknown]
  - Bone marrow failure [Recovering/Resolving]
  - White blood cell count decreased [Unknown]

NARRATIVE: CASE EVENT DATE: 20190806
